FAERS Safety Report 21083588 (Version 1)
Quarter: 2022Q3

REPORT INFORMATION
  Report Type: Spontaneous
  Country: US (occurrence: None)
  Receive Date: 20220714
  Receipt Date: 20220714
  Transmission Date: 20221026
  Serious: No
  Sender: FDA-Public Use
  Company Number: None

PATIENT
  Age: 71 Year
  Sex: Female
  Weight: 61 kg

DRUGS (1)
  1. ROPINIROLE HYDROCHLORIDE [Suspect]
     Active Substance: ROPINIROLE HYDROCHLORIDE
     Dosage: FREQUENCY : AT BEDTIME;?
     Route: 048
     Dates: start: 20220323, end: 20220418

REACTIONS (2)
  - Anxiety [None]
  - Withdrawal syndrome [None]

NARRATIVE: CASE EVENT DATE: 20220418
